FAERS Safety Report 24280708 (Version 5)
Quarter: 2024Q4

REPORT INFORMATION
  Report Type: Spontaneous
  Country: AR (occurrence: AR)
  Receive Date: 20240904
  Receipt Date: 20241016
  Transmission Date: 20250114
  Serious: Yes (Other)
  Sender: SANDOZ
  Company Number: AR-SANDOZ-SDZ2024AR077065

PATIENT
  Age: 50 Year
  Sex: Female
  Weight: 58 kg

DRUGS (2)
  1. TREPROSTINIL [Suspect]
     Active Substance: TREPROSTINIL
     Dosage: 11.0 NG/K/MN.(CONTINUOUS INFUSION)
     Route: 058
  2. TREPROSTINIL [Suspect]
     Active Substance: TREPROSTINIL
     Indication: Pulmonary arterial hypertension
     Dosage: 5.0 NG/K/MN, CONT (TREPROSTINIL 5 MG/ML)
     Route: 058
     Dates: start: 20240829

REACTIONS (12)
  - Head discomfort [Recovering/Resolving]
  - Injection site pruritus [Unknown]
  - Injection site discomfort [Unknown]
  - Injection site erythema [Not Recovered/Not Resolved]
  - Miliaria [Unknown]
  - Gait disturbance [Unknown]
  - Nausea [Recovered/Resolved]
  - Headache [Recovered/Resolved]
  - Pain in extremity [Unknown]
  - Injection site pain [Recovered/Resolved]
  - Vomiting [Recovered/Resolved]
  - Dizziness [Unknown]

NARRATIVE: CASE EVENT DATE: 20240829
